FAERS Safety Report 16051070 (Version 1)
Quarter: 2019Q1

REPORT INFORMATION
  Report Type: Spontaneous
  Country: US (occurrence: US)
  Receive Date: 20190208
  Receipt Date: 20190208
  Transmission Date: 20190418
  Serious: Yes (Hospitalization)
  Sender: FDA-Public Use
  Company Number: None

PATIENT
  Age: 72 Year
  Sex: Male
  Weight: 77 kg

DRUGS (1)
  1. LEUPROLIDE ACETATE. [Suspect]
     Active Substance: LEUPROLIDE ACETATE
     Dates: end: 20181008

REACTIONS (6)
  - Hypotension [None]
  - Atelectasis [None]
  - Cardio-respiratory arrest [None]
  - Pneumonia aspiration [None]
  - Bradycardia [None]
  - Cardiomegaly [None]

NARRATIVE: CASE EVENT DATE: 20190116
